FAERS Safety Report 7718763-6 (Version None)
Quarter: 2011Q3

REPORT INFORMATION
  Report Type: 
  Country: None (occurrence: None)
  Receive Date: 20110830
  Receipt Date: 20110829
  Transmission Date: 20111222
  Serious: Yes (Hospitalization)
  Sender: FDA-Public Use
  Company Number: US-PFIZER INC-2011200945

PATIENT
  Sex: Male
  Weight: 73 kg

DRUGS (7)
  1. VITAMIN B1 TAB [Concomitant]
     Dosage: UNK
  2. NICOTINE [Concomitant]
     Dosage: UNK
  3. CALCIUM WITH VITAMIN D [Concomitant]
     Dosage: UNK
  4. MAGNESIUM [Concomitant]
     Dosage: UNK
  5. ZOLOFT [Concomitant]
     Dosage: UNK
  6. MULTI-VITAMINS [Concomitant]
     Dosage: UNK
  7. GEODON [Suspect]
     Indication: AFFECTIVE DISORDER
     Dosage: 40 MG, 2X/DAY
     Dates: start: 20110824, end: 20110825

REACTIONS (2)
  - FALL [None]
  - ELECTROCARDIOGRAM ABNORMAL [None]
